FAERS Safety Report 5728348-9 (Version None)
Quarter: 2008Q2

REPORT INFORMATION
  Report Type: 
  Country: None (occurrence: None)
  Receive Date: 20080506
  Receipt Date: 20080423
  Transmission Date: 20081010
  Serious: Yes (Hospitalization)
  Sender: FDA-Public Use
  Company Number: PHHO2008NL05062

PATIENT
  Age: 43 Year
  Sex: Male
  Weight: 68 kg

DRUGS (5)
  1. EVEROLIMUS [Concomitant]
  2. NEORAL [Suspect]
     Indication: RENAL TRANSPLANT
     Dosage: 125 MG, BID
     Route: 048
  3. PREDNISONE [Concomitant]
     Indication: RENAL TRANSPLANT
  4. VALCYTE [Concomitant]
  5. COTRIM [Concomitant]

REACTIONS (5)
  - DIARRHOEA [None]
  - GASTROENTERITIS NOROVIRUS [None]
  - LUNG INFILTRATION [None]
  - MYCOBACTERIAL INFECTION [None]
  - PYREXIA [None]
